FAERS Safety Report 4475377-1 (Version None)
Quarter: 2004Q4

REPORT INFORMATION
  Report Type: 
  Country: None (occurrence: None)
  Receive Date: 20041014
  Receipt Date: 20041014
  Transmission Date: 20050328
  Serious: Yes (Life-Threatening, Hospitalization)
  Sender: FDA-Public Use
  Company Number: None

PATIENT
  Age: 78 Year
  Sex: Male
  Weight: 73.7 kg

DRUGS (12)
  1. AMIODARONE [Suspect]
     Indication: VENTRICULAR TACHYCARDIA
     Dosage: 15 MG /MIN IV X 10 MIN, THEN 1 GM/MIN IV X 6 HRS
     Route: 042
     Dates: start: 20020301
  2. COUMADIN [Concomitant]
  3. ASPIRIN [Concomitant]
  4. FUROSEMIDE [Concomitant]
  5. QUAIFENESIN [Concomitant]
  6. IPATROPIUM BROMIDE [Concomitant]
  7. LISINOPRIL [Concomitant]
  8. FLUNISOLIDE 250 MCG/MENTHOL INH [Concomitant]
  9. MULTIVITAMIN/MINERAL [Concomitant]
  10. LIDOCAINE [Concomitant]
  11. FUROSEMIDE [Concomitant]
  12. SPIRONOLACTONE [Concomitant]

REACTIONS (2)
  - BRADYCARDIA [None]
  - HYPOTENSION [None]
